FAERS Safety Report 24620680 (Version 1)
Quarter: 2024Q4

REPORT INFORMATION
  Report Type: Spontaneous
  Country: US (occurrence: None)
  Receive Date: 20241114
  Receipt Date: 20241114
  Transmission Date: 20250115
  Serious: Yes (Other)
  Sender: Public
  Company Number: None

PATIENT
  Age: 33 Year
  Sex: Female
  Weight: 64.41 kg

DRUGS (1)
  1. CITALOPRAM [Suspect]
     Active Substance: CITALOPRAM

REACTIONS (5)
  - Premature separation of placenta [None]
  - Bradycardia foetal [None]
  - Maternal drugs affecting foetus [None]
  - Caesarean section [None]
  - Postpartum haemorrhage [None]

NARRATIVE: CASE EVENT DATE: 20210909
